FAERS Safety Report 9268634 (Version 1)
Quarter: 2013Q2

REPORT INFORMATION
  Report Type: Report from Study
  Country: US (occurrence: US)
  Receive Date: 20130502
  Receipt Date: 20130502
  Transmission Date: 20140414
  Serious: Yes (Hospitalization)
  Sender: FDA-Public Use
  Company Number: US-ALEXION-A201300083

PATIENT
  Age: 20 Year
  Sex: Female
  Weight: 54.88 kg

DRUGS (11)
  1. ECULIZUMAB [Suspect]
     Indication: HAEMOLYTIC URAEMIC SYNDROME
     Dosage: UNK
     Route: 042
  2. XANAX [Concomitant]
     Indication: ANXIETY
     Dosage: 0.5 MG, PRN EVERY 8 HOURS
     Route: 048
     Dates: start: 20040301
  3. LAMICTAL [Concomitant]
     Indication: DEPRESSION
     Dosage: 200 MG, QD
     Route: 048
     Dates: start: 20091101
  4. LAMICTAL [Concomitant]
     Indication: ANXIETY
  5. TRAZODONE HCL [Concomitant]
     Indication: DEPRESSION
     Dosage: 100 MG, QD
     Route: 048
     Dates: start: 20090801
  6. TRAZODONE HCL [Concomitant]
     Indication: INSOMNIA
     Dosage: 150 MG, QD
     Route: 048
  7. LEXAPRO [Concomitant]
     Indication: DEPRESSION
     Dosage: 20 MG, QD
     Route: 048
     Dates: start: 20091201
  8. TOPAMAX [Concomitant]
     Indication: DEPRESSION
     Dosage: 75 MG, QD
     Route: 048
     Dates: start: 20040301
  9. NORGESTREL [Concomitant]
     Indication: CONTRACEPTION
     Dosage: 0.3MG-30 MCG QD
     Route: 048
  10. ZOFRAN [Concomitant]
     Indication: NAUSEA
     Dosage: 4 MG, PRN EVERY 8 HOURS
     Route: 048
  11. ZOFRAN [Concomitant]
     Indication: VOMITING

REACTIONS (1)
  - Migraine [Recovered/Resolved]
